FAERS Safety Report 4479007-4 (Version None)
Quarter: 2004Q4

REPORT INFORMATION
  Report Type: 
  Country: None (occurrence: None)
  Receive Date: 20041019
  Receipt Date: 20041008
  Transmission Date: 20050328
  Serious: Yes (Hospitalization)
  Sender: FDA-Public Use
  Company Number: BR-MERCK-0410BRA00323

PATIENT
  Age: 41 Year
  Sex: Male

DRUGS (3)
  1. VIOXX [Suspect]
     Indication: BACK PAIN
     Route: 048
     Dates: start: 20020101, end: 20020101
  2. VIOXX [Concomitant]
     Route: 048
     Dates: start: 20020101, end: 20020101
  3. DEPAKENE [Concomitant]
     Route: 048
     Dates: start: 19940101

REACTIONS (1)
  - CONVULSION [None]
